FAERS Safety Report 23561761 (Version 1)
Quarter: 2024Q1

REPORT INFORMATION
  Report Type: Report from Study
  Country: US (occurrence: US)
  Receive Date: 20240225
  Receipt Date: 20240225
  Transmission Date: 20240410
  Serious: Yes (Other)
  Sender: FDA-Public Use
  Company Number: US-ABBVIE-5648943

PATIENT
  Sex: Male

DRUGS (1)
  1. IMBRUVICA [Suspect]
     Active Substance: IBRUTINIB
     Indication: Chronic lymphocytic leukaemia
     Route: 048
     Dates: start: 20200101

REACTIONS (7)
  - Loss of consciousness [Unknown]
  - Tendonitis [Unknown]
  - Unevaluable event [Unknown]
  - Insomnia [Unknown]
  - Tinnitus [Unknown]
  - Labyrinthitis [Unknown]
  - Sinusitis [Unknown]
